FAERS Safety Report 6603545-9 (Version None)
Quarter: 2010Q1

REPORT INFORMATION
  Report Type: 
  Country: None (occurrence: None)
  Receive Date: 20100226
  Receipt Date: 20091027
  Transmission Date: 20100710
  Serious: No
  Sender: FDA-Public Use
  Company Number: A0808503A

PATIENT
  Age: 81 Year
  Sex: Female

DRUGS (2)
  1. VALTREX [Suspect]
     Route: 048
  2. ZOSTAVAX [Concomitant]
     Dates: start: 20090909

REACTIONS (1)
  - HERPES ZOSTER [None]
